FAERS Safety Report 11804618 (Version 1)
Quarter: 2015Q4

REPORT INFORMATION
  Report Type: Report from Study
  Country: US (occurrence: US)
  Receive Date: 20151204
  Receipt Date: 20151204
  Transmission Date: 20160305
  Serious: Yes (Hospitalization)
  Sender: FDA-Public Use
  Company Number: US-BRISTOL-MYERS SQUIBB COMPANY-BMS-2015-081736

PATIENT
  Age: 33 Year
  Sex: Female
  Weight: 63.3 kg

DRUGS (2)
  1. IPILIMUMAB [Suspect]
     Active Substance: IPILIMUMAB
     Indication: MALIGNANT MELANOMA
     Dosage: 810 MG, TOTAL
     Route: 042
     Dates: start: 20140317
  2. IPILIMUMAB [Suspect]
     Active Substance: IPILIMUMAB
     Dosage: 810 UNK, UNK
     Dates: start: 20140407

REACTIONS (4)
  - Dehydration [Recovering/Resolving]
  - Dysphagia [Recovering/Resolving]
  - Stomatitis [Recovering/Resolving]
  - Oral pain [Recovering/Resolving]

NARRATIVE: CASE EVENT DATE: 20140414
